FAERS Safety Report 4456699-7 (Version None)
Quarter: 2004Q3

REPORT INFORMATION
  Report Type: 
  Country: None (occurrence: None)
  Receive Date: 20040921
  Receipt Date: 20040908
  Transmission Date: 20050211
  Serious: Yes (Other)
  Sender: FDA-Public Use
  Company Number: 2004064679

PATIENT
  Age: 53 Year
  Sex: Female
  Weight: 79.3795 kg

DRUGS (6)
  1. LIPITOR [Suspect]
     Indication: BLOOD CHOLESTEROL INCREASED
     Dosage: ORAL
     Route: 048
  2. CELECOXIB (CELECOXIB) [Suspect]
     Indication: OSTEOARTHRITIS
     Dosage: (200 MG) ORAL
     Route: 048
     Dates: start: 20030101, end: 20030101
  3. VALDECOXIB [Suspect]
     Indication: OSTEOARTHRITIS
     Dosage: ORAL
     Route: 048
     Dates: start: 20030101, end: 20030101
  4. ROFECOXIB [Suspect]
     Indication: OSTEOARTHRITIS
     Dosage: ORAL
     Route: 048
  5. MONTELUKAST (MONTELUKAST) [Concomitant]
  6. TELMISARTAN (TELMISARTAN) [Concomitant]

REACTIONS (6)
  - DRUG INEFFECTIVE [None]
  - HEART RATE INCREASED [None]
  - MUSCLE ATROPHY [None]
  - MYALGIA [None]
  - PALPITATIONS [None]
  - RHABDOMYOLYSIS [None]
